FAERS Safety Report 23027687 (Version 2)
Quarter: 2024Q4

REPORT INFORMATION
  Report Type: Spontaneous
  Country: US (occurrence: US)
  Receive Date: 20231004
  Receipt Date: 20241227
  Transmission Date: 20250115
  Serious: Yes (Other)
  Sender: PFIZER
  Company Number: US-PFIZER INC-PV202300161166

PATIENT
  Age: 83 Year
  Sex: Female

DRUGS (7)
  1. IBRANCE [Suspect]
     Active Substance: PALBOCICLIB
     Indication: Chemotherapy
     Dosage: 100 MG, CYCLIC (TAKE ONE TAB DAILY FOR 21 CONSECUTIVE DAYS THEN STOP FOR 7 CONSECUTIVE DAYS)
     Route: 048
     Dates: start: 20230831, end: 20231103
  2. IBRANCE [Suspect]
     Active Substance: PALBOCICLIB
     Indication: Breast cancer female
     Dosage: TAKE ONE TAB BY MOUTH DAILY FOR 21 DAYS THEN STOP FOR 7 DAYS
     Route: 048
     Dates: start: 20240705
  3. IBRANCE [Suspect]
     Active Substance: PALBOCICLIB
     Indication: Hormone receptor positive breast cancer
  4. ARIMIDEX [Suspect]
     Active Substance: ANASTROZOLE
     Indication: Chemotherapy
     Dosage: UNK
     Dates: start: 20230831
  5. ARIMIDEX [Suspect]
     Active Substance: ANASTROZOLE
     Indication: Breast cancer female
  6. ARIMIDEX [Suspect]
     Active Substance: ANASTROZOLE
     Indication: Hormone receptor positive breast cancer
  7. FASLODEX [Suspect]
     Active Substance: FULVESTRANT
     Dosage: UNK
     Dates: start: 20240705

REACTIONS (3)
  - Hydronephrosis [Unknown]
  - Neoplasm progression [Unknown]
  - Mental status changes [Recovered/Resolved]

NARRATIVE: CASE EVENT DATE: 20240601
